FAERS Safety Report 11322349 (Version 2)
Quarter: 2015Q3

REPORT INFORMATION
  Report Type: Report from Study
  Country: NL (occurrence: None)
  Receive Date: 20150728
  Receipt Date: 20150819
  Transmission Date: 20151125
  Serious: Yes (Hospitalization)
  Sender: FDA-Public Use
  Company Number: 2015FE02476

PATIENT
  Age: 84 Year
  Sex: Male

DRUGS (1)
  1. DEGARELIX (DEGARELIX) POWDER AND SOLVENT FOR SOLUTION FOR INJECTION [Suspect]
     Active Substance: DEGARELIX
     Indication: PROSTATE CANCER
     Route: 058
     Dates: start: 20150120

REACTIONS (3)
  - Pyelonephritis [None]
  - Sepsis [None]
  - Urinary retention [None]

NARRATIVE: CASE EVENT DATE: 20150625
